FAERS Safety Report 7711036-7 (Version None)
Quarter: 2011Q3

REPORT INFORMATION
  Report Type: 
  Country: None (occurrence: None)
  Receive Date: 20110825
  Receipt Date: 20110823
  Transmission Date: 20111222
  Serious: Yes (Other)
  Sender: FDA-Public Use
  Company Number: US-BRISTOL-MYERS SQUIBB COMPANY-15994650

PATIENT
  Sex: Female

DRUGS (1)
  1. BUSPAR [Suspect]
     Dosage: STARTED:20YEARS AGO

REACTIONS (2)
  - DEAFNESS [None]
  - TINNITUS [None]
